FAERS Safety Report 11004735 (Version 3)
Quarter: 2016Q4

REPORT INFORMATION
  Report Type: Spontaneous
  Country: IE (occurrence: IE)
  Receive Date: 20150409
  Receipt Date: 20161021
  Transmission Date: 20170206
  Serious: Yes (Hospitalization)
  Sender: FDA-Public Use
  Company Number: IE-PFIZER INC-2015118027

PATIENT
  Age: 69 Year
  Sex: Male

DRUGS (8)
  1. ARCOXIA [Concomitant]
     Active Substance: ETORICOXIB
     Dosage: 60 MG, UNK
  2. ZOMETA [Concomitant]
     Active Substance: ZOLEDRONIC ACID
     Dosage: 4 MG, UNK
  3. DURAGESIC [Concomitant]
     Active Substance: FENTANYL
  4. OXYCONTIN [Concomitant]
     Active Substance: OXYCODONE HYDROCHLORIDE
  5. SUTENT [Suspect]
     Active Substance: SUNITINIB MALATE
     Indication: PHAEOCHROMOCYTOMA
     Dosage: 50 MG, CYCLIC (4 WEEKS ON TREATMENT 2 WEEKS OFF)
     Dates: start: 20150320, end: 20150403
  6. PANTOPRAZOLE [Concomitant]
     Active Substance: PANTOPRAZOLE SODIUM
  7. FRUSEMIDE /00032601/ [Concomitant]
     Active Substance: FUROSEMIDE
  8. BURINEX [Concomitant]
     Active Substance: BUMETANIDE

REACTIONS (7)
  - Pain [Unknown]
  - Vomiting [Unknown]
  - Product use issue [Unknown]
  - Skin ulcer [Unknown]
  - Blood pressure increased [Unknown]
  - Diarrhoea [Unknown]
  - Nausea [Unknown]
